FAERS Safety Report 9097242 (Version 1)
Quarter: 2013Q1

REPORT INFORMATION
  Report Type: Spontaneous
  Country: US (occurrence: US)
  Receive Date: 20130212
  Receipt Date: 20130212
  Transmission Date: 20140127
  Serious: Yes (Other)
  Sender: FDA-Public Use
  Company Number: US-ROXANE LABORATORIES, INC.-2013-RO-00215RO

PATIENT
  Age: 38 Year
  Sex: Male

DRUGS (5)
  1. MERCAPTOPURINE [Suspect]
     Indication: COLITIS ULCERATIVE
     Dosage: 100 MG
  2. MERCAPTOPURINE [Suspect]
     Dosage: 75 MG
  3. PREDNISONE [Suspect]
     Indication: COLITIS ULCERATIVE
  4. AMOXICILLIN [Suspect]
     Indication: ACNE CYSTIC
     Dosage: 250 MG
  5. STEROID [Concomitant]
     Indication: COLITIS ULCERATIVE
     Route: 042

REACTIONS (2)
  - Hepatotoxicity [Recovered/Resolved]
  - Drug ineffective [Recovered/Resolved]
